FAERS Safety Report 6509833-9 (Version None)
Quarter: 2009Q4

REPORT INFORMATION
  Report Type: 
  Country: None (occurrence: None)
  Receive Date: 20091222
  Receipt Date: 20090417
  Transmission Date: 20100525
  Serious: No
  Sender: FDA-Public Use
  Company Number: US-ABBOTT-09P-163-0568942-00

PATIENT
  Sex: Female
  Weight: 8.172 kg

DRUGS (2)
  1. OMNICEF [Suspect]
     Indication: EAR INFECTION
     Dosage: 125 MG PER TEASPOON.   3/4 OF A TEASPOON 3 TIMES A DAY FOR 10 DAYS
     Dates: start: 20090401
  2. ZANTAC [Concomitant]
     Indication: GASTROOESOPHAGEAL REFLUX DISEASE
     Dates: start: 20080101

REACTIONS (1)
  - TONGUE DISCOLOURATION [None]
